FAERS Safety Report 13195896 (Version 1)
Quarter: 2017Q1

REPORT INFORMATION
  Report Type: Report from Study
  Country: US (occurrence: US)
  Receive Date: 20170208
  Receipt Date: 20170208
  Transmission Date: 20170428
  Serious: Yes (Other)
  Sender: FDA-Public Use
  Company Number: US-AMGEN-USASL2017019469

PATIENT
  Sex: Female

DRUGS (1)
  1. ENBREL [Suspect]
     Active Substance: ETANERCEPT
     Indication: PSORIASIS
     Dosage: 50 MG, 2 TIMES/WK
     Route: 065

REACTIONS (8)
  - Injection site pain [Unknown]
  - Stress [Unknown]
  - Erythema [Unknown]
  - Malaise [Unknown]
  - Psoriasis [Unknown]
  - Dehydration [Unknown]
  - Injection site swelling [Unknown]
  - Haemorrhage [Unknown]
